FAERS Safety Report 18562330 (Version 1)
Quarter: 2020Q4

REPORT INFORMATION
  Report Type: Spontaneous
  Country: US (occurrence: US)
  Receive Date: 20201130
  Receipt Date: 20201130
  Transmission Date: 20210114
  Serious: Yes (Hospitalization, Other)
  Sender: FDA-Public Use
  Company Number: US-009507513-2011USA015745

PATIENT
  Age: 75 Year
  Sex: Female
  Weight: 68.9 kg

DRUGS (7)
  1. BRILINTA [Suspect]
     Active Substance: TICAGRELOR
     Dosage: 180 MILLIGRAM, QD
     Route: 048
     Dates: start: 201211
  2. BENADRYL [Suspect]
     Active Substance: DIPHENHYDRAMINE HYDROCHLORIDE
     Route: 065
  3. LIVALO [Concomitant]
     Active Substance: PITAVASTATIN CALCIUM
     Indication: BLOOD CHOLESTEROL ABNORMAL
     Route: 048
  4. PRINIVIL [Suspect]
     Active Substance: LISINOPRIL
     Route: 048
  5. CRESTOR [Suspect]
     Active Substance: ROSUVASTATIN CALCIUM
     Indication: BLOOD CHOLESTEROL ABNORMAL
     Dosage: 5 MILLIGRAM, QD
     Route: 048
     Dates: start: 201211, end: 201211
  6. ASPIRIN. [Concomitant]
     Active Substance: ASPIRIN
     Indication: PLATELET DISORDER
     Route: 048
  7. BRILINTA [Suspect]
     Active Substance: TICAGRELOR
     Indication: PLATELET DISORDER
     Dosage: 180 MILLIGRAM
     Route: 048
     Dates: start: 20121114

REACTIONS (16)
  - Sciatic nerve injury [Recovering/Resolving]
  - Pain in extremity [Unknown]
  - Nausea [Unknown]
  - Thrombosis in device [Recovering/Resolving]
  - Dyspnoea [Unknown]
  - Skin abrasion [Unknown]
  - Aversion [Unknown]
  - Increased appetite [Not Recovered/Not Resolved]
  - Procedural haemorrhage [Recovered/Resolved]
  - Weight increased [Not Recovered/Not Resolved]
  - Contusion [Recovering/Resolving]
  - Pruritus [Recovered/Resolved]
  - Swelling face [Unknown]
  - Chest pain [Unknown]
  - Headache [Unknown]
  - Mouth swelling [Unknown]

NARRATIVE: CASE EVENT DATE: 201211
